FAERS Safety Report 9186765 (Version 1)
Quarter: 2012Q4

REPORT INFORMATION
  Report Type: 
  Country: US (occurrence: US)
  Receive Date: 20121102
  Receipt Date: 20121102
  Transmission Date: 20130627
  Serious: No
  Sender: FDA-Public Use
  Company Number: US-ASTELLAS-2012US007512

PATIENT
  Age: 14 Year
  Sex: Male
  Weight: 60 kg

DRUGS (1)
  1. MYCAMINE [Suspect]
     Indication: ASPERGILLOSIS
     Dosage: 200 mg, UID/QD
     Route: 065

REACTIONS (1)
  - Off label use [Unknown]
